FAERS Safety Report 9189943 (Version 1)
Quarter: 2013Q1

REPORT INFORMATION
  Report Type: Spontaneous
  Country: US (occurrence: US)
  Receive Date: 20130326
  Receipt Date: 20130326
  Transmission Date: 20140127
  Serious: No
  Sender: FDA-Public Use
  Company Number: US-PFIZER INC-2013097043

PATIENT
  Age: 79 Year
  Sex: Female

DRUGS (13)
  1. LYRICA [Suspect]
     Dosage: UNK
  2. CLINDAMYCIN HCL [Suspect]
     Dosage: UNK
  3. GABAPENTIN [Suspect]
     Dosage: UNK
  4. METHOTREXATE SODIUM [Suspect]
     Dosage: UNK
  5. DILTIAZEM HCL [Suspect]
     Dosage: UNK
  6. MORPHINE SULFATE [Suspect]
     Dosage: UNK
  7. CASANTHRANOL [Suspect]
     Dosage: UNK
  8. CODEINE SULFATE [Suspect]
     Dosage: UNK
  9. ERYTHROMYCIN [Suspect]
     Dosage: UNK
  10. LEFLUNOMIDE [Suspect]
     Dosage: UNK
  11. PAMELOR [Suspect]
     Dosage: UNK
  12. PERCOCET [Suspect]
     Dosage: UNK
  13. PLAQUENIL [Suspect]
     Dosage: UNK

REACTIONS (1)
  - Drug hypersensitivity [Unknown]
